FAERS Safety Report 9569147 (Version 1)
Quarter: 2013Q3

REPORT INFORMATION
  Report Type: Spontaneous
  Country: US (occurrence: US)
  Receive Date: 20130930
  Receipt Date: 20130930
  Transmission Date: 20140515
  Serious: No
  Sender: FDA-Public Use
  Company Number: US-AMGEN-USASP2013058963

PATIENT
  Age: 57 Year
  Sex: Male
  Weight: 98.41 kg

DRUGS (3)
  1. ENBREL [Suspect]
     Indication: PRODUCT USED FOR UNKNOWN INDICATION
     Dosage: 50 MG/ML, EVERY WEEK
     Route: 058
  2. GLIPIZIDE [Concomitant]
     Dosage: 5 MG, UNK
  3. LEXAPRO [Concomitant]
     Dosage: 10 MG, UNK

REACTIONS (1)
  - Upper respiratory tract infection [Unknown]
